FAERS Safety Report 16166978 (Version 3)
Quarter: 2021Q2

REPORT INFORMATION
  Report Type: Spontaneous
  Country: FR (occurrence: FR)
  Receive Date: 20190408
  Receipt Date: 20210531
  Transmission Date: 20210716
  Serious: Yes (Other)
  Sender: FDA-Public Use
  Company Number: FR-SUN PHARMACEUTICAL INDUSTRIES LTD-2019RR-204275

PATIENT
  Age: 5 Decade
  Sex: Female

DRUGS (4)
  1. VALACICLOVIR [Suspect]
     Active Substance: VALACYCLOVIR HYDROCHLORIDE
     Indication: HAIRY CELL LEUKAEMIA
     Dosage: UNK
     Route: 065
  2. PENICILLIN V [Concomitant]
     Active Substance: PENICILLIN V
     Indication: HAIRY CELL LEUKAEMIA
     Route: 065
  3. COTRIMOXAZOLE [Concomitant]
     Active Substance: SULFAMETHOXAZOLE\TRIMETHOPRIM
     Indication: HAIRY CELL LEUKAEMIA
     Route: 065
  4. CLADRIBINE. [Concomitant]
     Active Substance: CLADRIBINE
     Indication: HAIRY CELL LEUKAEMIA
     Dosage: UNK
     Route: 065

REACTIONS (1)
  - Drug reaction with eosinophilia and systemic symptoms [Recovered/Resolved]
